FAERS Safety Report 20441587 (Version 1)
Quarter: 2022Q1

REPORT INFORMATION
  Report Type: Spontaneous
  Country: GB (occurrence: GB)
  Receive Date: 20220208
  Receipt Date: 20220208
  Transmission Date: 20220424
  Serious: Yes (Hospitalization, Other)
  Sender: FDA-Public Use
  Company Number: GB-MHRA-INP772C19AC-D2E2-4484-B94A-26034DA4B5B7

PATIENT
  Age: 30 Year
  Sex: Female
  Weight: 56 kg

DRUGS (6)
  1. CEPHALEXIN [Suspect]
     Active Substance: CEPHALEXIN
     Indication: Urinary tract infection
     Dosage: 500 MILLIGRAM
     Route: 048
  2. CLOTRIMAZOLE [Concomitant]
     Active Substance: CLOTRIMAZOLE
     Indication: Product used for unknown indication
     Dosage: UNK UNK, AS NECESSARY
     Route: 065
     Dates: start: 20211216
  3. DROSPIRENONE\ETHINYL ESTRADIOL [Concomitant]
     Active Substance: DROSPIRENONE\ETHINYL ESTRADIOL
     Indication: Product used for unknown indication
     Dosage: 1 DOSAGE FORM, ONCE A DAY (0.03MG/3MG, AS DIRECTED)
     Route: 065
     Dates: start: 20211021, end: 20211214
  4. MATORIDE [Concomitant]
     Indication: Product used for unknown indication
     Dosage: 36 MILLIGRAM, ONCE A DAY
     Route: 065
     Dates: start: 20211111, end: 20211214
  5. OMEPRAZOLE [Concomitant]
     Active Substance: OMEPRAZOLE
     Indication: Product used for unknown indication
     Dosage: 200 MILLIGRAM, ONCE A DAY
     Route: 065
     Dates: start: 20211022
  6. TRIMETHOPRIM [Concomitant]
     Active Substance: TRIMETHOPRIM
     Indication: Product used for unknown indication
     Dosage: 200 MILLIGRAM, TWO TIMES A DAY
     Route: 065
     Dates: start: 20211216

REACTIONS (1)
  - Clostridium difficile infection [Recovered/Resolved]

NARRATIVE: CASE EVENT DATE: 20211220
